FAERS Safety Report 14813006 (Version 1)
Quarter: 2018Q2

REPORT INFORMATION
  Report Type: Spontaneous
  Country: US (occurrence: US)
  Receive Date: 20180426
  Receipt Date: 20180426
  Transmission Date: 20180711
  Serious: No
  Sender: FDA-Public Use
  Company Number: US-VIFOR (INTERNATIONAL) INC.-VIT-2016-03858

PATIENT
  Age: 73 Year
  Sex: Female

DRUGS (17)
  1. CYMBALTA [Concomitant]
     Active Substance: DULOXETINE HYDROCHLORIDE
  2. NOVOLOG [Concomitant]
     Active Substance: INSULIN ASPART
  3. BIFIDOBACTERIUM LACTIS [Concomitant]
     Active Substance: BIFIDOBACTERIUM ANIMALIS LACTIS
  4. LOMOTIL [Concomitant]
     Active Substance: ATROPINE SULFATE\DIPHENOXYLATE HYDROCHLORIDE
  5. VELTASSA [Suspect]
     Active Substance: PATIROMER
     Indication: HYPERKALAEMIA
     Route: 048
     Dates: start: 20160421, end: 2018
  6. ADVAIR DISKUS [Concomitant]
     Active Substance: FLUTICASONE PROPIONATE\SALMETEROL XINAFOATE
  7. ACETYLSALICYLIC ACID [Concomitant]
     Active Substance: ASPIRIN
  8. BIOTIN [Concomitant]
     Active Substance: BIOTIN
  9. COREG [Concomitant]
     Active Substance: CARVEDILOL
  10. LANTUS SOLOSTAR [Concomitant]
     Active Substance: INSULIN GLARGINE
  11. LASIX [Concomitant]
     Active Substance: FUROSEMIDE
  12. AMLODIPINE BESILATE [Concomitant]
     Active Substance: AMLODIPINE BESYLATE
  13. PERCOCET [Concomitant]
     Active Substance: ACETAMINOPHEN\OXYCODONE HYDROCHLORIDE
  14. PRAVASTATIN SODIUM. [Concomitant]
     Active Substance: PRAVASTATIN SODIUM
  15. PROAIR HFA [Concomitant]
     Active Substance: ALBUTEROL SULFATE
  16. SPIRIVA [Concomitant]
     Active Substance: TIOTROPIUM BROMIDE MONOHYDRATE
  17. COLECALCIFEROL [Concomitant]
     Active Substance: CHOLECALCIFEROL

REACTIONS (2)
  - Rotator cuff syndrome [Recovered/Resolved]
  - Unevaluable event [Recovering/Resolving]

NARRATIVE: CASE EVENT DATE: 201605
